FAERS Safety Report 4477315-4 (Version None)
Quarter: 2004Q4

REPORT INFORMATION
  Report Type: 
  Country: None (occurrence: None)
  Receive Date: 20041018
  Receipt Date: 20041007
  Transmission Date: 20050328
  Serious: Yes (Other)
  Sender: FDA-Public Use
  Company Number: FR-JNJFOC-20041002525

PATIENT
  Age: 17 Year
  Sex: Male

DRUGS (1)
  1. CONCERTA [Suspect]
     Route: 049
     Dates: start: 20040601, end: 20041001

REACTIONS (1)
  - SUBCLAVIAN VEIN THROMBOSIS [None]
